FAERS Safety Report 24058997 (Version 2)
Quarter: 2025Q1

REPORT INFORMATION
  Report Type: Spontaneous
  Country: US (occurrence: US)
  Receive Date: 20240708
  Receipt Date: 20250108
  Transmission Date: 20250409
  Serious: No
  Sender: ALK-ABELLO
  Company Number: US-ALK-ABELLO A/S-2024AA002076

PATIENT

DRUGS (1)
  1. ALLERGENIC EXTRACT- PEANUT ARACHIS HYPOGAEA [Suspect]
     Active Substance: ALLERGENIC EXTRACT- PEANUT ARACHIS HYPOGAEA
     Indication: Diagnostic procedure
     Dates: start: 20240402

REACTIONS (1)
  - False negative investigation result [Unknown]

NARRATIVE: CASE EVENT DATE: 20240402
